FAERS Safety Report 9167036 (Version 1)
Quarter: 2013Q1

REPORT INFORMATION
  Report Type: Spontaneous
  Country: FR (occurrence: FR)
  Receive Date: 20130318
  Receipt Date: 20130318
  Transmission Date: 20140127
  Serious: Yes (Other)
  Sender: FDA-Public Use
  Company Number: PHHY2013FR025051

PATIENT
  Age: 67 Year
  Sex: Female

DRUGS (9)
  1. ESIDREX [Suspect]
     Indication: HYPERTENSION
     Dosage: 12.5 MG, QD
     Route: 048
     Dates: start: 20110510
  2. ZOLPIDEM [Suspect]
     Indication: INSOMNIA
     Dosage: 10 MG, QD
     Route: 048
     Dates: start: 20110316
  3. LOSARTAN [Suspect]
     Indication: HYPERTENSION
     Dosage: 100 MG, QD
     Route: 048
     Dates: start: 20070622
  4. BISOPROLOL [Suspect]
     Indication: HYPERTENSION
     Dosage: 10 MG, QD
     Route: 048
     Dates: start: 20070622
  5. LERCANIDIPINE [Suspect]
     Indication: HYPERTENSION
     Dosage: 10 MG, QD
     Route: 048
     Dates: start: 20070801
  6. SERTRALINE [Suspect]
     Indication: DEPRESSION
     Dosage: 50 MG, BID
     Dates: start: 20120812
  7. NOCERTONE [Suspect]
     Dosage: 60 MG, BID
     Route: 048
  8. SERESTA [Suspect]
     Dosage: 10 MG, QD
     Route: 048
  9. LEVOTHYROX [Concomitant]
     Indication: HYPOTHYROIDISM
     Dosage: 150 UG, QD
     Route: 048

REACTIONS (2)
  - Amnesia [Not Recovered/Not Resolved]
  - Somnambulism [Recovered/Resolved]
